FAERS Safety Report 13035942 (Version 1)
Quarter: 2016Q4

REPORT INFORMATION
  Report Type: Report from Study
  Country: JP (occurrence: JP)
  Receive Date: 20161216
  Receipt Date: 20161216
  Transmission Date: 20170207
  Serious: Yes (Other)
  Sender: FDA-Public Use
  Company Number: JP-OTSUKA-2016_001715

PATIENT
  Age: 54 Year
  Sex: Female
  Weight: 50.9 kg

DRUGS (2)
  1. TOLVAPTAN [Suspect]
     Active Substance: TOLVAPTAN
     Indication: CONGENITAL CYSTIC KIDNEY DISEASE
     Dosage: 75MG/DAY, DIVIDED INTO 2 DOSES
     Route: 048
     Dates: start: 20151208, end: 20160108
  2. TOLVAPTAN [Suspect]
     Active Substance: TOLVAPTAN
     Dosage: 60MG/DAY, DIVIDED INTO 2 DOSES
     Route: 048
     Dates: start: 20151105, end: 20151208

REACTIONS (1)
  - Liver disorder [Recovering/Resolving]

NARRATIVE: CASE EVENT DATE: 20160107
